FAERS Safety Report 26001199 (Version 1)
Quarter: 2025Q4

REPORT INFORMATION
  Report Type: Spontaneous
  Country: JP (occurrence: JP)
  Receive Date: 20251105
  Receipt Date: 20251105
  Transmission Date: 20260118
  Serious: Yes (Life-Threatening, Other)
  Sender: PFIZER
  Company Number: JP-PFIZER INC-PV202500128681

PATIENT
  Age: 74 Year
  Sex: Male
  Weight: 47 kg

DRUGS (26)
  1. METHOTREXATE SODIUM [Suspect]
     Active Substance: METHOTREXATE SODIUM
     Indication: Central nervous system lymphoma
     Dosage: 3500 MG/M2
     Dates: start: 20250811
  2. METHOTREXATE SODIUM [Suspect]
     Active Substance: METHOTREXATE SODIUM
     Dosage: UNK
     Dates: start: 20250901
  3. METHOTREXATE SODIUM [Suspect]
     Active Substance: METHOTREXATE SODIUM
     Dosage: UNK
     Dates: start: 20250916
  4. METHOTREXATE SODIUM [Suspect]
     Active Substance: METHOTREXATE SODIUM
     Dosage: 4500 MG, 1X/DAY
     Route: 042
     Dates: start: 20250929, end: 20250929
  5. ONCOVIN [Concomitant]
     Active Substance: VINCRISTINE SULFATE
     Dosage: UNK
     Dates: start: 20250901
  6. ONCOVIN [Concomitant]
     Active Substance: VINCRISTINE SULFATE
     Dosage: UNK
     Route: 042
     Dates: start: 20250929, end: 20250929
  7. MEYLON [Concomitant]
     Active Substance: SODIUM BICARBONATE
     Dosage: UNK
     Dates: start: 20251029
  8. DIAMOX SEQUELS [Concomitant]
     Active Substance: ACETAZOLAMIDE
     Dosage: UNK
     Dates: start: 20251029
  9. POTASSIUM CHLORIDE\SODIUM CHLORIDE\SODIUM LACTATE [Concomitant]
     Active Substance: POTASSIUM CHLORIDE\SODIUM CHLORIDE\SODIUM LACTATE
     Dosage: UNK
     Dates: start: 20251029
  10. SHAKUYAKUKANZOTO [Concomitant]
     Active Substance: HERBALS
     Route: 048
  11. DAYVIGO [Concomitant]
     Active Substance: LEMBOREXANT
     Route: 048
  12. PANTETHINE [Concomitant]
     Active Substance: PANTETHINE
     Route: 048
  13. RAMELTEON TAKEDA TEVA [Concomitant]
     Route: 048
  14. LINZESS [Concomitant]
     Active Substance: LINACLOTIDE
     Dosage: UNK
     Route: 048
  15. ROSUVASTATIN OD KMP [Concomitant]
     Route: 048
  16. ATOVAQUONE [Concomitant]
     Active Substance: ATOVAQUONE
     Route: 048
  17. AMLODIPINE [Concomitant]
     Active Substance: AMLODIPINE BESYLATE
     Route: 048
  18. KCL [Concomitant]
     Active Substance: POTASSIUM CHLORIDE
     Route: 042
  19. LEVETIRACETAM [Concomitant]
     Active Substance: LEVETIRACETAM
     Route: 042
  20. GASTER [Concomitant]
     Active Substance: FAMOTIDINE
     Route: 042
  21. LEUCOVORIN CALCIUM [Concomitant]
     Active Substance: LEUCOVORIN CALCIUM
     Route: 042
  22. PROCARBAZINE HYDROCHLORIDE TYP [Concomitant]
     Dosage: UNK
     Route: 048
     Dates: start: 20250916
  23. PROCARBAZINE HYDROCHLORIDE TYP [Concomitant]
     Dosage: UNK
     Route: 048
     Dates: start: 20250930, end: 20251002
  24. RITUXAN [Concomitant]
     Active Substance: RITUXIMAB
     Dosage: UNK
     Route: 042
     Dates: start: 20250901
  25. RITUXAN [Concomitant]
     Active Substance: RITUXIMAB
     Dosage: UNK
     Route: 042
     Dates: start: 20250922
  26. RITUXAN [Concomitant]
     Active Substance: RITUXIMAB
     Dosage: UNK
     Route: 042
     Dates: start: 20250930, end: 20250930

REACTIONS (5)
  - Acute kidney injury [Recovering/Resolving]
  - Drug level increased [Unknown]
  - COVID-19 [Unknown]
  - Myelosuppression [Unknown]
  - Pyrexia [Unknown]

NARRATIVE: CASE EVENT DATE: 20250811
